FAERS Safety Report 10179146 (Version 1)
Quarter: 2014Q2

REPORT INFORMATION
  Report Type: Spontaneous
  Country: US (occurrence: None)
  Receive Date: 20140516
  Receipt Date: 20140516
  Transmission Date: 20141212
  Serious: Yes (Other)
  Sender: FDA-Public Use
  Company Number: None

PATIENT
  Age: 52 Year
  Sex: Female
  Weight: 170 kg

DRUGS (3)
  1. LITHIUM CARBONATE, 300 MG [Suspect]
     Indication: POST-TRAUMATIC STRESS DISORDER
     Dosage: 300 MG 2 POLLS TWICE DAILY BY MOUTH
     Route: 048
  2. LEXAPRO [Concomitant]
  3. SEROQUEL [Concomitant]

REACTIONS (2)
  - Pain in jaw [None]
  - Skin mass [None]
